FAERS Safety Report 21033969 (Version 1)
Quarter: 2022Q3

REPORT INFORMATION
  Report Type: Spontaneous
  Country: US (occurrence: US)
  Receive Date: 20220701
  Receipt Date: 20220701
  Transmission Date: 20221026
  Serious: Yes (Other)
  Sender: FDA-Public Use
  Company Number: US-REDHILL BIOPHARMA-2022RDH00120

PATIENT
  Age: 74 Year
  Sex: Male
  Weight: 83.447 kg

DRUGS (10)
  1. TALICIA [Suspect]
     Active Substance: AMOXICILLIN\OMEPRAZOLE MAGNESIUM\RIFABUTIN
     Indication: Helicobacter infection
     Dosage: 4 TABLETS, 3X/DAY UNTIL COMPLETED
     Route: 048
     Dates: start: 20220513, end: 20220526
  2. HYDROCHLOROTHIAZIDE\TRIAMTERENE [Concomitant]
     Active Substance: HYDROCHLOROTHIAZIDE\TRIAMTERENE
     Dosage: 37.5 / 25 EVERY DAY
  3. DIETARY SUPPLEMENT [Concomitant]
     Active Substance: DIETARY SUPPLEMENT
     Dosage: UNK
     Dates: start: 2019
  4. ASPIRIN [Concomitant]
     Active Substance: ASPIRIN
     Dosage: 81 MG
  5. XANAX [Concomitant]
     Active Substance: ALPRAZOLAM
     Dosage: UNK, AS NEEDED
  6. ALPRAZOLAM [Concomitant]
     Active Substance: ALPRAZOLAM
  7. ACETAMINOPHEN [Concomitant]
     Active Substance: ACETAMINOPHEN
     Dosage: OCCASIONALLY
  8. IBUPROFEN [Concomitant]
     Active Substance: IBUPROFEN
     Dosage: OCCASIONALLY
  9. UNSPECIFIED INGREDIENT [Concomitant]
     Active Substance: UNSPECIFIED INGREDIENT
     Dosage: SOMETIMES
  10. LORATADINE WITH PSEUDOEPHEDRINE [Concomitant]
     Dosage: UNK, AS NEEDED

REACTIONS (5)
  - Blindness unilateral [Not Recovered/Not Resolved]
  - Visual impairment [Not Recovered/Not Resolved]
  - Eye pain [Recovered/Resolved]
  - Vitreous floaters [Not Recovered/Not Resolved]
  - Photopsia [Not Recovered/Not Resolved]

NARRATIVE: CASE EVENT DATE: 20220601
